FAERS Safety Report 10358263 (Version 1)
Quarter: 2014Q3

REPORT INFORMATION
  Report Type: Report from Study
  Country: CN (occurrence: CN)
  Receive Date: 20140801
  Receipt Date: 20140801
  Transmission Date: 20150326
  Serious: Yes (Hospitalization, Other)
  Sender: FDA-Public Use
  Company Number: CN-MYLAN-2014S1017750

PATIENT

DRUGS (2)
  1. KETAMINE [Suspect]
     Active Substance: KETAMINE
     Indication: OFF LABEL USE
  2. KETAMINE [Suspect]
     Active Substance: KETAMINE
     Indication: DRUG ABUSE
     Dosage: UNK
     Route: 065

REACTIONS (5)
  - Hypertonic bladder [None]
  - Hydronephrosis [None]
  - Renal impairment [Recovering/Resolving]
  - Drug abuse [Not Recovered/Not Resolved]
  - Contracted bladder [Recovering/Resolving]
